FAERS Safety Report 11243001 (Version 1)
Quarter: 2015Q3

REPORT INFORMATION
  Report Type: Spontaneous
  Country: US (occurrence: None)
  Receive Date: 20150702
  Receipt Date: 20150702
  Transmission Date: 20151125
  Serious: Yes (Hospitalization, Other)
  Sender: FDA-Public Use
  Company Number: ADR-2015-01235

PATIENT
  Age: 62 Year
  Sex: Male

DRUGS (2)
  1. BACLOFEN INTRATHECAL 2000 MCG/ML (CANGENE) [Suspect]
     Active Substance: BACLOFEN
     Indication: MUSCLE SPASTICITY
  2. MORPHINE INTRATHECAL [Suspect]
     Active Substance: MORPHINE

REACTIONS (4)
  - Encephalopathy [None]
  - Drug titration error [None]
  - Unresponsive to stimuli [None]
  - Accidental overdose [None]

NARRATIVE: CASE EVENT DATE: 20150619
